FAERS Safety Report 9753881 (Version 2)
Quarter: 2013Q4

REPORT INFORMATION
  Report Type: Spontaneous
  Country: US (occurrence: US)
  Receive Date: 20131213
  Receipt Date: 20131213
  Transmission Date: 20140711
  Serious: No
  Sender: FDA-Public Use
  Company Number: US-GILEAD-2010-0027642

PATIENT
  Sex: Female
  Weight: 99.79 kg

DRUGS (19)
  1. LETAIRIS [Suspect]
     Indication: PULMONARY ARTERIAL HYPERTENSION
     Route: 048
     Dates: start: 20070915
  2. ADCIRCA [Concomitant]
  3. LOPRESSOR [Concomitant]
  4. CARDIZEM [Concomitant]
  5. DIOVAN [Concomitant]
  6. LASIX [Concomitant]
  7. ALDACTONE [Concomitant]
  8. COUMADIN [Concomitant]
  9. PREDNISONE [Concomitant]
  10. CELLCEPT [Concomitant]
  11. DURICEF [Concomitant]
  12. FLORASTOR [Concomitant]
  13. CYMBALTA [Concomitant]
  14. TRAZODONE [Concomitant]
  15. METOCLOPRAMIDE [Concomitant]
  16. PRILOSEC [Concomitant]
  17. ASPIRIN [Concomitant]
  18. SKELAXIN [Concomitant]
  19. OXYGEN [Concomitant]

REACTIONS (1)
  - Oedema [Recovered/Resolved]
